FAERS Safety Report 8494204-9 (Version None)
Quarter: 2012Q3

REPORT INFORMATION
  Report Type: 
  Country: None (occurrence: None)
  Receive Date: 20120709
  Receipt Date: 20120703
  Transmission Date: 20120928
  Serious: Yes (Hospitalization)
  Sender: FDA-Public Use
  Company Number: PHHY2012JP032316

PATIENT
  Sex: Female

DRUGS (26)
  1. CLOZARIL [Suspect]
     Dosage: 300 MG, DAILY
     Route: 048
     Dates: start: 20091210, end: 20100106
  2. CLOZARIL [Suspect]
     Dosage: 450 MG, DAILY
     Route: 048
     Dates: start: 20110202, end: 20110220
  3. DEPAKENE [Concomitant]
     Indication: SCHIZOPHRENIA, DISORGANISED TYPE
     Dosage: 800 MG, UNK
     Route: 048
     Dates: start: 20071010
  4. HIRNAMIN [Concomitant]
     Indication: SCHIZOPHRENIA, DISORGANISED TYPE
     Dosage: 25 MG, UNK
     Dates: start: 20101101, end: 20101117
  5. CLOZARIL [Suspect]
     Dosage: 200 MG, DAILY
     Route: 048
     Dates: start: 20101103, end: 20101109
  6. CLOZARIL [Suspect]
     Dosage: 350 MG, DAILY
     Route: 048
     Dates: start: 20101117, end: 20101124
  7. CLOZARIL [Suspect]
     Dosage: 500 MG, DAILY
     Route: 048
     Dates: start: 20110105, end: 20110201
  8. LORAZEPAM [Concomitant]
     Indication: SCHIZOPHRENIA, DISORGANISED TYPE
     Route: 048
     Dates: start: 20101031, end: 20111101
  9. CLOZARIL [Suspect]
     Dosage: 350 MG, DAILY
     Route: 048
     Dates: start: 20091112, end: 20091125
  10. CLOZARIL [Suspect]
     Dosage: 100 MG, DAILY
     Route: 048
     Dates: start: 20101101, end: 20101102
  11. CLOZARIL [Suspect]
     Dosage: 375 MG, DAILY
     Route: 048
     Dates: start: 20101125, end: 20101207
  12. GASMOTIN [Concomitant]
     Dosage: 10 MG, UNK
     Route: 048
     Dates: start: 20090401
  13. GOODMIN [Concomitant]
     Indication: SCHIZOPHRENIA, DISORGANISED TYPE
     Route: 048
     Dates: start: 20101031, end: 20110405
  14. CLOZARIL [Suspect]
     Dosage: 50 MG, DAILY
     Route: 048
     Dates: start: 20101027, end: 20101031
  15. CLOZARIL [Suspect]
     Dosage: 400 MG, DAILY
     Route: 048
     Dates: start: 20101208, end: 20101214
  16. CLOZARIL [Suspect]
     Dosage: 475 MG, DAILY
     Route: 048
     Dates: start: 20101222, end: 20110104
  17. SODIUM PICOSULFATE [Concomitant]
     Indication: CONSTIPATION
     Route: 048
     Dates: start: 20101209, end: 20110401
  18. CLOZARIL [Suspect]
     Dosage: 25 MG, DAILY
     Route: 048
     Dates: start: 20100120, end: 20101026
  19. CLOZARIL [Suspect]
     Dosage: 475 MG, DAILY
     Route: 048
     Dates: start: 20110221, end: 20110301
  20. FLUNITRAZEPAM [Concomitant]
     Dosage: 2 MG, UNK
     Route: 048
  21. CLOZARIL [Suspect]
     Indication: SCHIZOPHRENIA, DISORGANISED TYPE
     Dosage: 400 MG, DAILY
     Route: 048
     Dates: start: 20091015, end: 20091111
  22. CLOZARIL [Suspect]
     Dosage: 325 MG, DAILY
     Route: 048
     Dates: start: 20091126, end: 20091209
  23. CLOZARIL [Suspect]
     Dosage: 300 MG, DAILY
     Route: 048
     Dates: start: 20101110, end: 20101116
  24. CLOZARIL [Suspect]
     Dosage: 450 MG, DAILY
     Route: 048
     Dates: start: 20101215, end: 20101221
  25. CLOZARIL [Suspect]
     Dosage: 500 MG, DAILY
     Route: 048
     Dates: start: 20110302
  26. FLUNITRAZEPAM [Concomitant]
     Indication: SCHIZOPHRENIA, DISORGANISED TYPE
     Dosage: 1 MG, UNK
     Route: 048
     Dates: start: 20090401

REACTIONS (1)
  - PSYCHIATRIC SYMPTOM [None]
